FAERS Safety Report 20305576 (Version 3)
Quarter: 2022Q1

REPORT INFORMATION
  Report Type: Report from Study
  Country: CA (occurrence: CA)
  Receive Date: 20220106
  Receipt Date: 20220208
  Transmission Date: 20220423
  Serious: Yes (Hospitalization, Other)
  Sender: FDA-Public Use
  Company Number: CA-SA-SAC20211223000898

PATIENT
  Age: 69 Year
  Sex: Female

DRUGS (8)
  1. DUPILUMAB [Suspect]
     Active Substance: DUPILUMAB
     Indication: Dermatitis atopic
     Dosage: 600 MG, 1X
     Route: 058
     Dates: start: 20211203, end: 20211203
  2. DUPILUMAB [Suspect]
     Active Substance: DUPILUMAB
     Dosage: 300 MG, QOW
     Route: 058
     Dates: start: 20211218
  3. PREDNISONE [Concomitant]
     Active Substance: PREDNISONE
     Dosage: UNK
     Route: 065
     Dates: end: 20211216
  4. PREDNISONE [Concomitant]
     Active Substance: PREDNISONE
  5. ELIDEL [Concomitant]
     Active Substance: PIMECROLIMUS
     Dosage: UNK
     Route: 065
  6. ELIDEL [Concomitant]
     Active Substance: PIMECROLIMUS
  7. TOPISONE [Concomitant]
     Dosage: UNK
     Route: 065
  8. TOPISONE [Concomitant]

REACTIONS (5)
  - Pulmonary embolism [Not Recovered/Not Resolved]
  - Thrombosis [Recovering/Resolving]
  - Pruritus [Not Recovered/Not Resolved]
  - Oral pain [Not Recovered/Not Resolved]
  - Therapy cessation [Unknown]
